FAERS Safety Report 19262366 (Version 8)
Quarter: 2021Q4

REPORT INFORMATION
  Report Type: Spontaneous
  Country: US (occurrence: US)
  Receive Date: 20210516
  Receipt Date: 20211227
  Transmission Date: 20220303
  Serious: Yes (Other)
  Sender: FDA-Public Use
  Company Number: US-AMGEN-USASP2021072921

PATIENT
  Age: 41 Year
  Sex: Female

DRUGS (10)
  1. OTEZLA [Suspect]
     Active Substance: APREMILAST
     Indication: Behcet^s syndrome
     Dosage: 30 MILLIGRAM, BID
     Route: 048
     Dates: start: 20210416
  2. OTEZLA [Suspect]
     Active Substance: APREMILAST
     Dosage: 30 MILLIGRAM, BID
     Route: 048
     Dates: start: 20210512
  3. CIMETIDINE [Concomitant]
     Active Substance: CIMETIDINE
     Dosage: UNK
  4. OMEPRAZOLE [Concomitant]
     Active Substance: OMEPRAZOLE
     Dosage: UNK
  5. COLCHICINE [Concomitant]
     Active Substance: COLCHICINE
     Dosage: UNK
  6. PROPRANOLOL [Concomitant]
     Active Substance: PROPRANOLOL HYDROCHLORIDE
     Dosage: UNK
  7. MELOXICAM [Concomitant]
     Active Substance: MELOXICAM
     Dosage: UNK
  8. ZOLOFT [Concomitant]
     Active Substance: SERTRALINE HYDROCHLORIDE
     Dosage: UNK
  9. VYVANSE [Concomitant]
     Active Substance: LISDEXAMFETAMINE DIMESYLATE
     Dosage: UNK
  10. AZATHIOPRINE [Concomitant]
     Active Substance: AZATHIOPRINE
     Dosage: UNK

REACTIONS (11)
  - Behcet^s syndrome [Not Recovered/Not Resolved]
  - Infection [Not Recovered/Not Resolved]
  - Alopecia [Not Recovered/Not Resolved]
  - Eye inflammation [Not Recovered/Not Resolved]
  - Arthritis [Not Recovered/Not Resolved]
  - Upper respiratory tract infection [Not Recovered/Not Resolved]
  - Nausea [Not Recovered/Not Resolved]
  - Vomiting [Not Recovered/Not Resolved]
  - Headache [Not Recovered/Not Resolved]
  - Gastrointestinal disorder [Not Recovered/Not Resolved]
  - Respiratory disorder [Not Recovered/Not Resolved]

NARRATIVE: CASE EVENT DATE: 20210101
